FAERS Safety Report 4837718-2 (Version None)
Quarter: 2005Q4

REPORT INFORMATION
  Report Type: 
  Country: None (occurrence: None)
  Receive Date: 20051128
  Receipt Date: 20051004
  Transmission Date: 20060501
  Serious: Yes (Hospitalization)
  Sender: FDA-Public Use
  Company Number: US-MERCK-0510USA03070

PATIENT
  Age: 46 Year
  Sex: Male
  Weight: 80 kg

DRUGS (19)
  1. VIOXX [Suspect]
     Indication: ROTATOR CUFF SYNDROME
     Route: 048
     Dates: start: 20000725, end: 20040819
  2. TOPROL-XL [Concomitant]
     Route: 065
  3. LIPITOR [Concomitant]
     Route: 065
  4. FOLIC ACID [Concomitant]
     Route: 065
  5. LISINOPRIL [Concomitant]
     Route: 065
  6. MONOPRIL [Concomitant]
     Route: 065
  7. HYDROCHLOROTHIAZIDE [Concomitant]
     Route: 065
  8. TRICOR [Concomitant]
     Route: 065
  9. AMARYL [Concomitant]
     Route: 065
  10. DIOVAN HCT [Concomitant]
     Route: 065
  11. ZITHROMAX [Concomitant]
     Route: 065
  12. ACTOS [Concomitant]
     Route: 065
  13. ZETIA [Concomitant]
     Route: 065
  14. MECLIZINE [Concomitant]
     Route: 065
  15. PRINIVIL [Concomitant]
     Route: 065
  16. CIPRO [Concomitant]
     Route: 065
  17. GUIATUSS A.C. SYRUP [Concomitant]
     Route: 065
  18. LEVAQUIN [Concomitant]
     Route: 065
  19. ACCURETIC [Concomitant]
     Route: 065

REACTIONS (3)
  - ACUTE MYOCARDIAL INFARCTION [None]
  - ANGINA UNSTABLE [None]
  - CORONARY ARTERY DISEASE [None]
